FAERS Safety Report 17707819 (Version 2)
Quarter: 2020Q2

REPORT INFORMATION
  Report Type: Report from Study
  Country: None (occurrence: US)
  Receive Date: 20200424
  Receipt Date: 20200507
  Transmission Date: 20200714
  Serious: Yes (Other)
  Sender: FDA-Public Use
  Company Number: US-ABBVIE-20K-163-3377804-00

PATIENT
  Age: 59 Year
  Sex: Female

DRUGS (1)
  1. HUMIRA [Suspect]
     Active Substance: ADALIMUMAB
     Indication: CROHN^S DISEASE
     Route: 058

REACTIONS (10)
  - Joint swelling [Unknown]
  - Vein disorder [Unknown]
  - Fistula of small intestine [Unknown]
  - Spinal osteoarthritis [Unknown]
  - Neuropathy peripheral [Unknown]
  - Malaise [Unknown]
  - Fistula discharge [Unknown]
  - Gastrointestinal pain [Unknown]
  - Intervertebral disc degeneration [Unknown]
  - Product packaging issue [Recovered/Resolved]

NARRATIVE: CASE EVENT DATE: 20200410
